FAERS Safety Report 5829029-3 (Version None)
Quarter: 2008Q3

REPORT INFORMATION
  Report Type: 
  Country: None (occurrence: None)
  Receive Date: 20080731
  Receipt Date: 20080731
  Transmission Date: 20090109
  Serious: Yes (Death, Hospitalization)
  Sender: FDA-Public Use
  Company Number: PHEH2001US00669

PATIENT
  Sex: Female
  Weight: 64.5 kg

DRUGS (16)
  1. RAD 666 RAD+ [Suspect]
     Indication: LUNG TRANSPLANT
     Dosage: 1.5 MG, BID
     Route: 048
     Dates: start: 20000710, end: 20010103
  2. NEORAL [Suspect]
     Indication: LUNG TRANSPLANT
  3. PROGRAF [Suspect]
  4. GANCICLOVIR [Suspect]
  5. PREDNISONE [Concomitant]
     Indication: LUNG TRANSPLANT
  6. AMIKACIN [Concomitant]
  7. IMURAN [Concomitant]
  8. DAPSONE [Concomitant]
  9. ZANTAC [Concomitant]
  10. CARDIZEM [Concomitant]
  11. PREMARIN [Concomitant]
  12. LIPITOR [Concomitant]
  13. XANAX [Concomitant]
  14. ULTRAM [Concomitant]
  15. MAGNESIUM OXIDE [Concomitant]
  16. CALCIUM CARBONATE [Concomitant]

REACTIONS (20)
  - BLOOD CREATININE INCREASED [None]
  - CARBON DIOXIDE INCREASED [None]
  - COUGH [None]
  - CYTOMEGALOVIRUS TEST [None]
  - DISEASE PROGRESSION [None]
  - DYSPNOEA [None]
  - FATIGUE [None]
  - HAEMOLYTIC ANAEMIA [None]
  - HYPOAESTHESIA [None]
  - LUNG TRANSPLANT REJECTION [None]
  - MENTAL STATUS CHANGES [None]
  - NEUROPATHY PERIPHERAL [None]
  - OBLITERATIVE BRONCHIOLITIS [None]
  - OXYGEN SATURATION DECREASED [None]
  - PALLOR [None]
  - PARAESTHESIA [None]
  - PRODUCTIVE COUGH [None]
  - PYREXIA [None]
  - RENAL FAILURE [None]
  - RESPIRATORY FAILURE [None]
